FAERS Safety Report 25116073 (Version 3)
Quarter: 2025Q2

REPORT INFORMATION
  Report Type: Spontaneous
  Country: US (occurrence: US)
  Receive Date: 20250325
  Receipt Date: 20250504
  Transmission Date: 20250716
  Serious: Yes (Other)
  Sender: SANOFI AVENTIS
  Company Number: US-SA-2025SA025502

PATIENT
  Age: 16 Year
  Sex: Female

DRUGS (2)
  1. DUPIXENT [Suspect]
     Active Substance: DUPILUMAB
     Indication: Eosinophilic oesophagitis
     Dosage: 300 MG, QW
     Route: 058
     Dates: start: 202412, end: 20250311
  2. DUPIXENT [Suspect]
     Active Substance: DUPILUMAB
     Dosage: 300 MG, QW
     Route: 058
     Dates: start: 2025

REACTIONS (13)
  - Choking [Unknown]
  - Oesophageal food impaction [Unknown]
  - Anxiety [Unknown]
  - Retching [Unknown]
  - Dysphagia [Unknown]
  - Intentional dose omission [Unknown]
  - Food refusal [Unknown]
  - Candida infection [Unknown]
  - Odynophagia [Unknown]
  - Pain [Unknown]
  - Aphthous ulcer [Unknown]
  - Alopecia [Unknown]
  - Urticaria [Unknown]

NARRATIVE: CASE EVENT DATE: 20250301
